FAERS Safety Report 8295045-8 (Version None)
Quarter: 2012Q2

REPORT INFORMATION
  Report Type: 
  Country: None (occurrence: None)
  Receive Date: 20120416
  Receipt Date: 20120331
  Transmission Date: 20120825
  Serious: Yes (Other)
  Sender: FDA-Public Use
  Company Number: 2012AP000962

PATIENT
  Age: 34 Year
  Sex: Female

DRUGS (5)
  1. ALPRAZOLAM [Concomitant]
  2. ZOLPIDEM TARTRATE [Suspect]
     Indication: PANIC ATTACK
     Dosage: 2 TAB
  3. ZOLPIDEM TARTRATE [Suspect]
     Indication: ANXIETY
     Dosage: 2 TAB
  4. LAMICTAL [Concomitant]
  5. ALCOHOL [Suspect]

REACTIONS (14)
  - ALCOHOL USE [None]
  - IMPRISONMENT [None]
  - AMNESIA [None]
  - INCORRECT DOSE ADMINISTERED [None]
  - IMPAIRED DRIVING ABILITY [None]
  - PANIC DISORDER [None]
  - INSOMNIA [None]
  - DIZZINESS [None]
  - ROAD TRAFFIC ACCIDENT [None]
  - SOMNAMBULISM [None]
  - ANXIETY [None]
  - FAMILY STRESS [None]
  - DRUG LEVEL INCREASED [None]
  - ATAXIA [None]
